FAERS Safety Report 9401691 (Version 2)
Quarter: 2013Q4

REPORT INFORMATION
  Report Type: Spontaneous
  Country: US (occurrence: US)
  Receive Date: 20130716
  Receipt Date: 20131107
  Transmission Date: 20140711
  Serious: No
  Sender: FDA-Public Use
  Company Number: US-BIOGENIDEC-2013BI063460

PATIENT
  Sex: Female

DRUGS (1)
  1. TYSABRI [Suspect]
     Indication: MULTIPLE SCLEROSIS
     Route: 042
     Dates: start: 20120530

REACTIONS (5)
  - Abasia [Unknown]
  - Dysstasia [Unknown]
  - Lacrimation increased [Unknown]
  - Urticaria [Recovered/Resolved]
  - Uhthoff^s phenomenon [Unknown]
